FAERS Safety Report 8953126 (Version 1)
Quarter: 2012Q4

REPORT INFORMATION
  Report Type: 
  Country: GB (occurrence: US)
  Receive Date: 20121206
  Receipt Date: 20121206
  Transmission Date: 20130627
  Serious: Yes (Hospitalization)
  Sender: FDA-Public Use
  Company Number: US-009507513-1211USA010071

PATIENT
  Age: 65 Year
  Sex: Male
  Weight: 68.9 kg

DRUGS (10)
  1. TEMOZOLOMIDE [Suspect]
     Indication: GLIOBLASTOMA
     Dosage: day 1-5 each cycle
     Route: 048
     Dates: start: 20091223, end: 20100221
  2. BEVACIZUMAB [Suspect]
     Indication: GLIOBLASTOMA
     Dosage: 889 mg, qow
     Route: 042
     Dates: start: 20091223, end: 20100303
  3. IRINOTECAN HYDROCHLORIDE [Suspect]
     Indication: GLIOBLASTOMA
     Dosage: UNK UNK, qow
     Route: 042
     Dates: start: 20091223, end: 20100303
  4. KEPPRA [Concomitant]
     Dosage: 1000 mg, bid
  5. DECADRON (DEXAMETHASONE) [Concomitant]
     Dosage: UNK
  6. FLOMAX (TAMSULOSIN HYDROCHLORIDE) [Concomitant]
  7. HYDROCHLOROTHIAZIDE [Concomitant]
     Dosage: UNK
  8. METOPROLOL [Concomitant]
     Dosage: 25 mg, bid
  9. NORVASC [Concomitant]
     Dosage: UNK
  10. PREVACID [Concomitant]
     Dosage: UNK

REACTIONS (2)
  - Haemorrhage intracranial [Unknown]
  - Convulsion [Unknown]
